FAERS Safety Report 22850333 (Version 3)
Quarter: 2023Q4

REPORT INFORMATION
  Report Type: Spontaneous
  Country: US (occurrence: US)
  Receive Date: 20230822
  Receipt Date: 20231114
  Transmission Date: 20240109
  Serious: No
  Sender: FDA-Public Use
  Company Number: US-PFIZER INC-202300281297

PATIENT
  Sex: Female

DRUGS (1)
  1. INLYTA [Suspect]
     Active Substance: AXITINIB
     Dosage: TAKING ONE 5 MILLIGRAMS TABLET A DAY

REACTIONS (4)
  - Intentional product misuse [Unknown]
  - Pain in extremity [Unknown]
  - Hypertension [Unknown]
  - Malaise [Unknown]
